FAERS Safety Report 22182707 (Version 2)
Quarter: 2023Q2

REPORT INFORMATION
  Report Type: Spontaneous
  Country: BR (occurrence: BR)
  Receive Date: 20230406
  Receipt Date: 20230609
  Transmission Date: 20230722
  Serious: Yes (Hospitalization, Other)
  Sender: FDA-Public Use
  Company Number: BR-SAMSUNG BIOEPIS-SB-2023-09068

PATIENT

DRUGS (13)
  1. ONTRUZANT [Suspect]
     Active Substance: TRASTUZUMAB-DTTB
     Indication: Inflammatory carcinoma of breast stage III
     Dosage: UNKNOWN, CYCLE: 1;FREQUENCY: 18 CYCLES. 21-DAY INTERVAL
     Route: 065
  2. PERTUZUMAB [Suspect]
     Active Substance: PERTUZUMAB
     Indication: Inflammatory carcinoma of breast stage III
     Dosage: UNKNOWN, CYCLE: 1;FREQUENCY: 18 CYCLES. 21-DAY INTERVAL
     Route: 065
  3. DOCETAXEL [Suspect]
     Active Substance: DOCETAXEL
     Indication: Inflammatory carcinoma of breast stage III
     Dosage: UNKNOWN, CYCLE: 1;FREQUENCY: 18 CYCLES. 21-DAY INTERVAL
     Route: 065
  4. CARBOPLATIN [Suspect]
     Active Substance: CARBOPLATIN
     Indication: Inflammatory carcinoma of breast stage III
     Dosage: UNKNOWN, CYCLE: 1;FREQUENCY: 18 CYCLES. 21-DAY INTERVAL
     Route: 065
  5. DIPYRONE [Concomitant]
     Active Substance: DIPYRONE
     Indication: Product used for unknown indication
     Dosage: UNKNOWN; PRN (AS NEEDED)
     Route: 065
  6. FLUOXETINE [Concomitant]
     Active Substance: FLUOXETINE HYDROCHLORIDE
     Indication: Product used for unknown indication
     Route: 065
  7. SODIUM CHLORIDE [Concomitant]
     Active Substance: SODIUM CHLORIDE
     Indication: Product used for unknown indication
     Route: 065
  8. DIPHENHYDRAMINE [Concomitant]
     Active Substance: DIPHENHYDRAMINE
     Indication: Product used for unknown indication
     Route: 065
  9. DIPHENHYDRAMINE [Concomitant]
     Active Substance: DIPHENHYDRAMINE
     Route: 065
  10. ACETAMINOPHEN [Concomitant]
     Active Substance: ACETAMINOPHEN
     Indication: Product used for unknown indication
     Route: 065
  11. ACETAMINOPHEN [Concomitant]
     Active Substance: ACETAMINOPHEN
     Route: 065
  12. ONDANSETRON [Concomitant]
     Active Substance: ONDANSETRON
     Indication: Product used for unknown indication
     Route: 065
  13. ONDANSETRON [Concomitant]
     Active Substance: ONDANSETRON
     Route: 065

REACTIONS (5)
  - Cardiotoxicity [Unknown]
  - Dyspnoea [Unknown]
  - Hypoxia [Unknown]
  - Pulmonary embolism [Unknown]
  - Cough [Unknown]
